FAERS Safety Report 11135507 (Version 1)
Quarter: 2015Q2

REPORT INFORMATION
  Report Type: Spontaneous
  Country: CN (occurrence: None)
  Receive Date: 20150521
  Receipt Date: 20150521
  Transmission Date: 20150821
  Serious: Yes (Death)
  Sender: FDA-Public Use
  Company Number: 2015SEB00035

PATIENT

DRUGS (1)
  1. MIACALCIC [Suspect]
     Active Substance: CALCITONIN SALMON
     Dosage: 50-100 IU, EVERY 48 HOURS
     Route: 030

REACTIONS (1)
  - Injection site pain [None]
